FAERS Safety Report 10158693 (Version 1)
Quarter: 2014Q2

REPORT INFORMATION
  Report Type: Spontaneous
  Country: US (occurrence: US)
  Receive Date: 20140508
  Receipt Date: 20140508
  Transmission Date: 20141212
  Serious: No
  Sender: FDA-Public Use
  Company Number: US-BIOGENIDEC-2013BI082648

PATIENT
  Age: 65 Year
  Sex: Female

DRUGS (6)
  1. TECFIDERA [Suspect]
     Indication: MULTIPLE SCLEROSIS
     Route: 048
     Dates: start: 201305
  2. TECFIDERA [Suspect]
     Indication: MULTIPLE SCLEROSIS
  3. AVONEX [Concomitant]
     Indication: MULTIPLE SCLEROSIS
     Route: 030
  4. PRILOSEC [Concomitant]
  5. SYNTHROID [Concomitant]
  6. ZANTAC [Concomitant]

REACTIONS (2)
  - Visual acuity reduced [Not Recovered/Not Resolved]
  - Flushing [Not Recovered/Not Resolved]
